FAERS Safety Report 10390138 (Version 1)
Quarter: 2014Q1

REPORT INFORMATION
  Report Type: Spontaneous
  Country: US (occurrence: None)
  Receive Date: 20140306
  Receipt Date: 20140306
  Transmission Date: 20141002
  Serious: Yes (Other)
  Sender: FDA-Public Use
  Company Number: 163-21880-13014053

PATIENT
  Age: 68 Year
  Sex: Male

DRUGS (9)
  1. REVLIMID (LENALIDOMIDE) (CAPSULES) [Suspect]
     Indication: MYELODYSPLASTIC SYNDROME
     Dosage: 5 MG 28 IN 28 D
     Route: 048
     Dates: start: 20111109
  2. ALLOPURINOL [Concomitant]
  3. ATENOLOL [Concomitant]
  4. DIPHENOXYLATE HCL (DIPHENOXYLATE HYDROCHLORIDE) [Concomitant]
  5. LACTULOSE [Concomitant]
  6. LASIX (FUROSEMIDE) [Concomitant]
  7. MAGNESIUM CITRATE [Concomitant]
  8. NITROGLYCERIN (GLYCERYL TRINITRATE) [Concomitant]
  9. PLAVIX (CLOPIDOGREL SULFATE) [Concomitant]

REACTIONS (3)
  - Syncope [None]
  - Fall [None]
  - Contusion [None]
